FAERS Safety Report 4693509-7 (Version None)
Quarter: 2005Q2

REPORT INFORMATION
  Report Type: 
  Country: None (occurrence: None)
  Receive Date: 20050615
  Receipt Date: 20050516
  Transmission Date: 20051028
  Serious: Yes (Other)
  Sender: FDA-Public Use
  Company Number: C05-050

PATIENT
  Age: 51 Year
  Sex: Male

DRUGS (1)
  1. DIGOXIN [Suspect]
     Indication: CARDIAC FAILURE CONGESTIVE
     Dosage: 1 TAB DAILY
     Dates: start: 20020209

REACTIONS (3)
  - CHEST PAIN [None]
  - DRUG LEVEL BELOW THERAPEUTIC [None]
  - THERAPY NON-RESPONDER [None]
